FAERS Safety Report 8122928-1 (Version None)
Quarter: 2012Q1

REPORT INFORMATION
  Report Type: 
  Country: None (occurrence: None)
  Receive Date: 20120208
  Receipt Date: 20120127
  Transmission Date: 20120608
  Serious: Yes (Hospitalization)
  Sender: FDA-Public Use
  Company Number: US-PFIZER INC-2012021743

PATIENT
  Sex: Male
  Weight: 68.04 kg

DRUGS (8)
  1. PROPECIA [Concomitant]
     Route: 065
  2. IBUPROFEN [Suspect]
     Dosage: UNK
     Route: 048
  3. PLANT ALKALOIDS AND OTHER NATURAL PRODUCTS [Suspect]
     Indication: INFLAMMATORY BOWEL DISEASE
     Dosage: 1-2 MG
     Route: 065
     Dates: start: 20111221
  4. RESTORIL [Concomitant]
     Route: 065
  5. LIBRIUM [Concomitant]
     Route: 065
  6. PROPECIA [Concomitant]
     Indication: ALOPECIA
     Dosage: UNK
     Route: 065
  7. RESTORIL [Concomitant]
     Indication: SLEEP DISORDER THERAPY
     Dosage: UNK
     Route: 065
  8. LIBRIUM [Concomitant]
     Indication: ANXIETY
     Dosage: UNK
     Route: 065

REACTIONS (3)
  - CHEST PAIN [None]
  - GASTRIC ULCER HAEMORRHAGE [None]
  - OFF LABEL USE [None]
